FAERS Safety Report 17162336 (Version 1)
Quarter: 2019Q4

REPORT INFORMATION
  Report Type: Spontaneous
  Country: US (occurrence: US)
  Receive Date: 20191216
  Receipt Date: 20191216
  Transmission Date: 20200122
  Serious: No
  Sender: FDA-Public Use
  Company Number: None

PATIENT
  Age: 17 Year
  Sex: Female

DRUGS (2)
  1. OXCARBAZEPINE. [Suspect]
     Active Substance: OXCARBAZEPINE
     Indication: EPILEPSY
     Route: 048
  2. LEVETIRACETAM 500MG [Concomitant]
     Active Substance: LEVETIRACETAM
     Dates: start: 20151201, end: 20191216

REACTIONS (5)
  - Product quality issue [None]
  - Dizziness [None]
  - Visual impairment [None]
  - Gait disturbance [None]
  - Oral discomfort [None]

NARRATIVE: CASE EVENT DATE: 20191215
